FAERS Safety Report 24976030 (Version 2)
Quarter: 2025Q4

REPORT INFORMATION
  Report Type: Spontaneous
  Country: US (occurrence: US)
  Receive Date: 20250217
  Receipt Date: 20251119
  Transmission Date: 20260119
  Serious: Yes (Other)
  Sender: COOPERSURGICAL
  Company Number: US-COOPERSURGICAL, INC.-2025CPS000919

PATIENT
  Sex: Female
  Weight: 99.773 kg

DRUGS (1)
  1. PARAGARD T 380A [Suspect]
     Active Substance: COPPER
     Indication: Contraception
     Dosage: UNK
     Route: 015
     Dates: start: 20141124

REACTIONS (15)
  - Reproductive complication associated with device [Unknown]
  - Device breakage [Recovered/Resolved]
  - Foreign body in urogenital tract [Recovered/Resolved]
  - Complication of device removal [Recovered/Resolved]
  - Emotional distress [Unknown]
  - Sexual dysfunction [Unknown]
  - Vaginal odour [Recovered/Resolved]
  - Anxiety [Unknown]
  - Agitation [Unknown]
  - Headache [Unknown]
  - Vaginal infection [Recovered/Resolved]
  - Bacterial vaginosis [Recovered/Resolved]
  - Vaginal discharge [Recovered/Resolved]
  - Menstrual disorder [Unknown]
  - Heavy menstrual bleeding [Unknown]

NARRATIVE: CASE EVENT DATE: 20170101
